FAERS Safety Report 18476202 (Version 2)
Quarter: 2021Q1

REPORT INFORMATION
  Report Type: Spontaneous
  Country: DE (occurrence: DE)
  Receive Date: 20201107
  Receipt Date: 20210129
  Transmission Date: 20210419
  Serious: Yes (Hospitalization, Other)
  Sender: FDA-Public Use
  Company Number: DE-AUROBINDO-AUR-APL-2020-054841

PATIENT
  Sex: Female

DRUGS (9)
  1. TORASEMIDE [Suspect]
     Active Substance: TORSEMIDE
     Indication: HYPERTENSION
     Dosage: 5 MG, QD
     Route: 048
  2. LETROZOLE. [Suspect]
     Active Substance: LETROZOLE
     Indication: BREAST CANCER METASTATIC
     Dosage: 2.5 MG, QD (DAILY)
     Route: 048
     Dates: start: 20190201
  3. METOPROLOL. [Concomitant]
     Active Substance: METOPROLOL
     Indication: HYPERTENSION
     Dosage: 95 MG, BID (ONCE IN THE MORNING, ONCE IN THE EVENING)
     Route: 048
  4. TORASEMIDE [Suspect]
     Active Substance: TORSEMIDE
     Dosage: 10 MG, QD
     Route: 048
     Dates: start: 20200311
  5. KISQALI [Suspect]
     Active Substance: RIBOCICLIB
     Indication: BREAST CANCER METASTATIC
     Dosage: 600 MG, QD (SCHEMA 21 DAYS INTAKE, THAN 7 DAYS PAUSE)
     Route: 048
     Dates: start: 20190201
  6. NITRENDIPINE [Concomitant]
     Active Substance: NITRENDIPINE
     Indication: HYPERTENSION
     Dosage: 10 MG, PRN (AS NEEDED, }150 MMHG SYSTOLIC)
     Route: 048
     Dates: start: 20190207
  7. KISQALI [Suspect]
     Active Substance: RIBOCICLIB
     Dosage: 400 MG, QD (SCHEMA 21 DAYS INTAKE, THAN 7 DAYS PAUSE)
     Route: 048
     Dates: start: 20190430
  8. NITRENDIPINE [Concomitant]
     Active Substance: NITRENDIPINE
     Dosage: 1 DF (BLOOD PRESSURE }180MMHG)
     Route: 048
  9. LOSARTAN. [Concomitant]
     Active Substance: LOSARTAN
     Indication: HYPERTENSION
     Dosage: 100 MG, QD (ONCE IN THE MORNING)
     Route: 048

REACTIONS (6)
  - Hypokalaemia [Recovered/Resolved]
  - Oedema peripheral [Recovered/Resolved]
  - Blood pressure fluctuation [Unknown]
  - Hypertensive crisis [Recovered/Resolved]
  - Fatigue [Unknown]
  - Peripheral venous disease [Unknown]

NARRATIVE: CASE EVENT DATE: 20191118
